FAERS Safety Report 10149196 (Version 1)
Quarter: 2014Q2

REPORT INFORMATION
  Report Type: Spontaneous
  Country: US (occurrence: None)
  Receive Date: 20140501
  Receipt Date: 20140501
  Transmission Date: 20141212
  Serious: Yes (Hospitalization)
  Sender: FDA-Public Use
  Company Number: None

PATIENT
  Age: 66 Year
  Sex: Male

DRUGS (5)
  1. AMIODARONE [Suspect]
     Indication: ATRIAL FIBRILLATION
     Route: 048
     Dates: start: 20130531, end: 20130612
  2. ATORVASTATIN [Concomitant]
  3. RIVAROXABAN [Concomitant]
  4. SERTRALINE [Concomitant]
  5. METOPROLOL TARTRATE [Concomitant]

REACTIONS (5)
  - Hypoxia [None]
  - Dyspnoea exertional [None]
  - Interstitial lung disease [None]
  - Pneumonia [None]
  - Pulmonary toxicity [None]
